FAERS Safety Report 8287545-1 (Version None)
Quarter: 2012Q2

REPORT INFORMATION
  Report Type: 
  Country: None (occurrence: None)
  Receive Date: 20120416
  Receipt Date: 20120405
  Transmission Date: 20120825
  Serious: Yes (Other)
  Sender: FDA-Public Use
  Company Number: US-ASTRAZENECA-2010SE23953

PATIENT
  Age: 44 Year
  Sex: Female
  Weight: 54.4 kg

DRUGS (9)
  1. SEROQUEL [Suspect]
     Indication: SOMNOLENCE
     Dosage: 50 MG ONE TABLET IN THE MORNING AND ONE TABLET IN THE EVENING
     Route: 048
  2. SEROQUEL [Suspect]
     Route: 048
     Dates: start: 20100201, end: 20100201
  3. SEROQUEL [Suspect]
     Route: 048
  4. AMITRYPTILLINE [Concomitant]
  5. KLONOPIN [Concomitant]
  6. SEROQUEL [Suspect]
     Route: 048
     Dates: start: 20100401, end: 20100401
  7. SEROQUEL [Suspect]
     Route: 048
     Dates: start: 20100401
  8. TOPAMAX [Concomitant]
  9. SEROQUEL [Suspect]
     Route: 048

REACTIONS (8)
  - INFLUENZA [None]
  - INTENTIONAL DRUG MISUSE [None]
  - OFF LABEL USE [None]
  - INSOMNIA [None]
  - DRUG INEFFECTIVE FOR UNAPPROVED INDICATION [None]
  - DISORIENTATION [None]
  - THERAPEUTIC RESPONSE UNEXPECTED [None]
  - CARDIAC DISORDER [None]
